FAERS Safety Report 22346564 (Version 5)
Quarter: 2023Q4

REPORT INFORMATION
  Report Type: Report from Study
  Country: US (occurrence: US)
  Receive Date: 20230520
  Receipt Date: 20231014
  Transmission Date: 20240109
  Serious: Yes (Other)
  Sender: FDA-Public Use
  Company Number: US-002147023-NVSC2023US113115

PATIENT
  Sex: Female

DRUGS (1)
  1. ENTRESTO [Suspect]
     Active Substance: SACUBITRIL\VALSARTAN
     Indication: Product used for unknown indication
     Dosage: 1 DOSAGE FORM, BID
     Route: 065
     Dates: start: 20230511

REACTIONS (5)
  - Coronary artery occlusion [Unknown]
  - Cardiac valve disease [Unknown]
  - Rhinorrhoea [Unknown]
  - Anxiety [Unknown]
  - Fatigue [Unknown]
